FAERS Safety Report 11530213 (Version 1)
Quarter: 2015Q3

REPORT INFORMATION
  Report Type: Spontaneous
  Country: US (occurrence: None)
  Receive Date: 20150918
  Receipt Date: 20150918
  Transmission Date: 20151125
  Serious: Yes (Hospitalization)
  Sender: FDA-Public Use
  Company Number: None

PATIENT
  Age: 63 Year
  Sex: Male
  Weight: 85 kg

DRUGS (2)
  1. SAPPHIRE PUMP [Concomitant]
  2. MILRINONE [Suspect]
     Active Substance: MILRINONE

REACTIONS (2)
  - Device malfunction [None]
  - Incorrect drug administration rate [None]

NARRATIVE: CASE EVENT DATE: 20150906
